FAERS Safety Report 5319287-6 (Version None)
Quarter: 2007Q2

REPORT INFORMATION
  Report Type: 
  Country: None (occurrence: None)
  Receive Date: 20070508
  Receipt Date: 20070426
  Transmission Date: 20071010
  Serious: Yes (Other)
  Sender: FDA-Public Use
  Company Number: BR-PFIZER INC-2007027514

PATIENT
  Sex: Female
  Weight: 54 kg

DRUGS (4)
  1. DOSTINEX [Suspect]
     Indication: HYPERPROLACTINAEMIA
     Route: 048
  2. DOSTINEX [Suspect]
     Indication: CYST
  3. ATENOLOL [Concomitant]
     Route: 048
  4. BROMAZEPAM [Concomitant]
     Route: 048

REACTIONS (9)
  - ABDOMINAL PAIN UPPER [None]
  - BLINDNESS [None]
  - BLOOD PRESSURE DECREASED [None]
  - CHEST PAIN [None]
  - DRUG ADMINISTRATION ERROR [None]
  - MUSCULAR WEAKNESS [None]
  - NAUSEA [None]
  - TACHYCARDIA [None]
  - TREMOR [None]
